FAERS Safety Report 5010931-X (Version None)
Quarter: 2006Q2

REPORT INFORMATION
  Report Type: 
  Country: None (occurrence: None)
  Receive Date: 20060525
  Receipt Date: 19961211
  Transmission Date: 20061013
  Serious: Yes (Other)
  Sender: FDA-Public Use
  Company Number: DE-BRISTOL-MYERS SQUIBB COMPANY-13384953

PATIENT
  Age: 68 Year
  Sex: Male
  Weight: 82 kg

DRUGS (2)
  1. TAXOL [Suspect]
     Indication: BREAST CANCER
     Route: 042
     Dates: start: 19960916, end: 19960916
  2. CARBOPLATIN [Suspect]
     Indication: BREAST CANCER
     Dates: start: 19960916, end: 19960916

REACTIONS (1)
  - VENOUS THROMBOSIS [None]
